FAERS Safety Report 6997196-4 (Version None)
Quarter: 2010Q3

REPORT INFORMATION
  Report Type: 
  Country: None (occurrence: None)
  Receive Date: 20100918
  Receipt Date: 20090924
  Transmission Date: 20110219
  Serious: No
  Sender: FDA-Public Use
  Company Number: US-WYE-H11211109

PATIENT
  Sex: Female
  Weight: 57.66 kg

DRUGS (2)
  1. PRISTIQ [Suspect]
     Indication: DEPRESSION
     Route: 048
     Dates: start: 20090601
  2. AMITRIPTYLINE HCL [Concomitant]

REACTIONS (1)
  - VULVOVAGINAL DRYNESS [None]
